FAERS Safety Report 8395954-5 (Version None)
Quarter: 2012Q2

REPORT INFORMATION
  Report Type: 
  Country: None (occurrence: None)
  Receive Date: 20120529
  Receipt Date: 20120529
  Transmission Date: 20120825
  Serious: Yes (Life-Threatening, Hospitalization)
  Sender: FDA-Public Use
  Company Number: None

PATIENT
  Sex: Female

DRUGS (1)
  1. TEGRETOL [Suspect]
     Indication: POST-TRAUMATIC STRESS DISORDER
     Dosage: SMALLEST DOSAGES
     Dates: start: 20100901

REACTIONS (2)
  - LOSS OF CONSCIOUSNESS [None]
  - HYPOKALAEMIA [None]
